FAERS Safety Report 8458360-0 (Version None)
Quarter: 2012Q2

REPORT INFORMATION
  Report Type: 
  Country: None (occurrence: None)
  Receive Date: 20120622
  Receipt Date: 20120619
  Transmission Date: 20120825
  Serious: Yes (Other)
  Sender: FDA-Public Use
  Company Number: ES-SANOFI-AVENTIS-2012SA043941

PATIENT
  Age: 81 Year
  Sex: Male

DRUGS (8)
  1. PROPAFENONE HYDROCHLORIDE [Suspect]
     Indication: VENTRICULAR TACHYCARDIA
     Route: 065
  2. PROCAINAMIDE [Concomitant]
     Indication: VENTRICULAR TACHYCARDIA
  3. DRONEDARONE HCL [Suspect]
     Route: 065
  4. BETA BLOCKING AGENTS [Concomitant]
  5. SOTALOL HCL [Suspect]
     Indication: VENTRICULAR TACHYCARDIA
     Route: 065
  6. ANGIOTENSIN II ANTAGONISTS [Concomitant]
  7. AMIODARONE HYDROCHLORIDE [Suspect]
     Indication: VENTRICULAR TACHYCARDIA
     Route: 065
  8. AMIODARONE HYDROCHLORIDE [Suspect]
     Dosage: DOSE INCREASED
     Route: 065

REACTIONS (7)
  - NAUSEA [None]
  - VOMITING [None]
  - HYPOTHYROIDISM [None]
  - ELECTROCARDIOGRAM QT PROLONGED [None]
  - OFF LABEL USE [None]
  - DIARRHOEA [None]
  - ASTHENIA [None]
